FAERS Safety Report 9226833 (Version 1)
Quarter: 2013Q2

REPORT INFORMATION
  Report Type: Spontaneous
  Country: GB (occurrence: GB)
  Receive Date: 20130412
  Receipt Date: 20130412
  Transmission Date: 20140414
  Serious: Yes (Other)
  Sender: FDA-Public Use
  Company Number: GB-JNJFOC-20130401964

PATIENT
  Age: 41 Year
  Sex: Female

DRUGS (2)
  1. INFLIXIMAB, RECOMBINANT [Suspect]
     Indication: SPONDYLOARTHROPATHY
     Route: 042
     Dates: start: 200411, end: 200810
  2. METHOTREXATE [Suspect]
     Indication: SPONDYLOARTHROPATHY
     Route: 048

REACTIONS (1)
  - Malignant melanoma [Unknown]
